FAERS Safety Report 14699682 (Version 2)
Quarter: 2018Q2

REPORT INFORMATION
  Report Type: Report from Study
  Country: US (occurrence: US)
  Receive Date: 20180330
  Receipt Date: 20180405
  Transmission Date: 20180711
  Serious: Yes (Hospitalization)
  Sender: FDA-Public Use
  Company Number: US-ROCHE-1368770

PATIENT
  Age: 47 Year
  Sex: Male
  Weight: 118.39 kg

DRUGS (58)
  1. ACETAMINOPHEN. [Concomitant]
     Active Substance: ACETAMINOPHEN
     Dosage: WEEK 2
     Route: 065
     Dates: start: 20120702
  2. ACETAMINOPHEN. [Concomitant]
     Active Substance: ACETAMINOPHEN
     Dosage: WEEK 48
     Route: 065
     Dates: start: 20130522
  3. ACETAMINOPHEN. [Concomitant]
     Active Substance: ACETAMINOPHEN
     Dosage: OLE-WEEK 48
     Route: 065
     Dates: start: 20150407
  4. ACETAMINOPHEN. [Concomitant]
     Active Substance: ACETAMINOPHEN
     Dosage: OLE-WEEK 120
     Route: 065
     Dates: start: 20160822
  5. METHYLPREDNISOLONE. [Concomitant]
     Active Substance: METHYLPREDNISOLONE
     Dosage: OLE-WEEK 72
     Route: 065
     Dates: start: 20150921, end: 20150921
  6. DIPHENHYDRAMINE. [Concomitant]
     Active Substance: DIPHENHYDRAMINE
     Dosage: OLE-WEEK 48
     Route: 065
     Dates: start: 20150407
  7. OCRELIZUMAB. [Suspect]
     Active Substance: OCRELIZUMAB
     Dosage: WEEK 48
     Route: 042
     Dates: start: 20130522, end: 20130522
  8. ACETAMINOPHEN. [Concomitant]
     Active Substance: ACETAMINOPHEN
     Dosage: WEEK 72
     Route: 065
     Dates: start: 20131107
  9. ACETAMINOPHEN. [Concomitant]
     Active Substance: ACETAMINOPHEN
     Dosage: OLE WEEK 24
     Route: 065
     Dates: start: 20141020
  10. METHYLPREDNISOLONE. [Concomitant]
     Active Substance: METHYLPREDNISOLONE
     Indication: PREMEDICATION
     Dosage: BASELINE WEEK (1)
     Route: 065
     Dates: start: 20120618, end: 20120618
  11. METHYLPREDNISOLONE. [Concomitant]
     Active Substance: METHYLPREDNISOLONE
     Dosage: WEEK 2
     Route: 065
     Dates: start: 20120702, end: 20120702
  12. METHYLPREDNISOLONE. [Concomitant]
     Active Substance: METHYLPREDNISOLONE
     Dosage: WEEK 72
     Route: 065
     Dates: start: 20131107, end: 20131107
  13. METHYLPREDNISOLONE. [Concomitant]
     Active Substance: METHYLPREDNISOLONE
     Dosage: OLE WEEK 24
     Route: 065
     Dates: start: 20141020, end: 20141020
  14. METHYLPREDNISOLONE. [Concomitant]
     Active Substance: METHYLPREDNISOLONE
     Dosage: OLE-WEEK 144
     Route: 065
     Dates: start: 20170210, end: 20170210
  15. AMANTADINE. [Concomitant]
     Active Substance: AMANTADINE HYDROCHLORIDE
     Route: 065
     Dates: start: 201203, end: 201209
  16. WELLBUTRIN [Concomitant]
     Active Substance: BUPROPION HYDROCHLORIDE
     Route: 065
     Dates: start: 20140214
  17. ACETAMINOPHEN. [Concomitant]
     Active Substance: ACETAMINOPHEN
     Indication: PREMEDICATION
     Dosage: BASELINE WEEK  (1)
     Route: 065
     Dates: start: 20120618
  18. ACETAMINOPHEN. [Concomitant]
     Active Substance: ACETAMINOPHEN
     Dosage: OLE-WEEK 144
     Route: 065
     Dates: start: 20170210
  19. ACETAMINOPHEN. [Concomitant]
     Active Substance: ACETAMINOPHEN
     Dosage: OLE-WEEK 168
     Route: 065
     Dates: start: 20170725
  20. METHYLPREDNISOLONE. [Concomitant]
     Active Substance: METHYLPREDNISOLONE
     Dosage: OLE-WEEK 96
     Route: 065
     Dates: start: 20160309, end: 20160309
  21. DIPHENHYDRAMINE. [Concomitant]
     Active Substance: DIPHENHYDRAMINE
     Dosage: OLE WEEK 2
     Route: 065
     Dates: start: 20140519
  22. DIPHENHYDRAMINE. [Concomitant]
     Active Substance: DIPHENHYDRAMINE
     Dosage: OLE-WEEK 72
     Route: 065
     Dates: start: 20150921
  23. OCRELIZUMAB. [Suspect]
     Active Substance: OCRELIZUMAB
     Indication: RELAPSING-REMITTING MULTIPLE SCLEROSIS
     Dosage: BASE LINE WEEK (1)
     Route: 042
     Dates: start: 20120618, end: 20120618
  24. OCRELIZUMAB. [Suspect]
     Active Substance: OCRELIZUMAB
     Dosage: WEEK 72
     Route: 042
     Dates: start: 20131107, end: 20131107
  25. ACETAMINOPHEN. [Concomitant]
     Active Substance: ACETAMINOPHEN
     Dosage: OLE-WEEK 96
     Route: 065
     Dates: start: 20160309
  26. ACETAMINOPHEN. [Concomitant]
     Active Substance: ACETAMINOPHEN
     Dosage: OLE-WEEK 192
     Route: 065
     Dates: start: 20180111
  27. METHYLPREDNISOLONE. [Concomitant]
     Active Substance: METHYLPREDNISOLONE
     Dosage: OLE WEEK 0
     Route: 065
     Dates: start: 20140505, end: 20140505
  28. DIPHENHYDRAMINE. [Concomitant]
     Active Substance: DIPHENHYDRAMINE
     Dosage: WEEK 2
     Route: 065
     Dates: start: 20120702
  29. DIPHENHYDRAMINE. [Concomitant]
     Active Substance: DIPHENHYDRAMINE
     Dosage: OLE-WEEK 96
     Route: 065
     Dates: start: 20160309
  30. DIPHENHYDRAMINE. [Concomitant]
     Active Substance: DIPHENHYDRAMINE
     Dosage: OLE-WEEK 144
     Route: 065
     Dates: start: 20170210
  31. ACETAMINOPHEN. [Concomitant]
     Active Substance: ACETAMINOPHEN
     Dosage: OLE-WEEK 72
     Route: 065
     Dates: start: 20150921
  32. METHYLPREDNISOLONE. [Concomitant]
     Active Substance: METHYLPREDNISOLONE
     Dosage: OLE- WEEK 48
     Route: 065
     Dates: start: 20150407, end: 20150407
  33. IBUPROFEN. [Concomitant]
     Active Substance: IBUPROFEN
     Route: 065
     Dates: start: 20120815, end: 20120816
  34. DIPHENHYDRAMINE. [Concomitant]
     Active Substance: DIPHENHYDRAMINE
     Indication: PREMEDICATION
     Dosage: BASELINE WEEK  (1)
     Route: 065
     Dates: start: 20120618
  35. DIPHENHYDRAMINE. [Concomitant]
     Active Substance: DIPHENHYDRAMINE
     Dosage: WEEK 24
     Route: 065
     Dates: start: 20121204
  36. DIPHENHYDRAMINE. [Concomitant]
     Active Substance: DIPHENHYDRAMINE
     Dosage: WEEK 48
     Route: 065
     Dates: start: 20130522
  37. ACETAMINOPHEN. [Concomitant]
     Active Substance: ACETAMINOPHEN
     Dosage: WEEK 24
     Route: 065
     Dates: start: 20121204
  38. ACETAMINOPHEN. [Concomitant]
     Active Substance: ACETAMINOPHEN
     Dosage: OLE WEEK 0
     Route: 065
     Dates: start: 20140505
  39. METHYLPREDNISOLONE. [Concomitant]
     Active Substance: METHYLPREDNISOLONE
     Dosage: WEEK 48
     Route: 065
     Dates: start: 20130522, end: 20130522
  40. BENADRYL [Concomitant]
     Active Substance: DIPHENHYDRAMINE HYDROCHLORIDE
     Route: 065
     Dates: start: 20121204, end: 20121204
  41. DIPHENHYDRAMINE. [Concomitant]
     Active Substance: DIPHENHYDRAMINE
     Dosage: OLE WEEK 0
     Route: 065
     Dates: start: 20140505
  42. DIPHENHYDRAMINE. [Concomitant]
     Active Substance: DIPHENHYDRAMINE
     Dosage: OLE WEEK 24
     Route: 065
     Dates: start: 20141020
  43. DIPHENHYDRAMINE. [Concomitant]
     Active Substance: DIPHENHYDRAMINE
     Dosage: OLE-WEEK 120
     Route: 065
     Dates: start: 20160822
  44. OCRELIZUMAB. [Suspect]
     Active Substance: OCRELIZUMAB
     Dosage: WEEK 2
     Route: 042
     Dates: start: 20120702, end: 20120702
  45. PLACEBO [Suspect]
     Active Substance: UNSPECIFIED INGREDIENT
     Indication: RELAPSING-REMITTING MULTIPLE SCLEROSIS
     Route: 058
     Dates: start: 20120618, end: 20140123
  46. ACETAMINOPHEN. [Concomitant]
     Active Substance: ACETAMINOPHEN
     Dosage: OLE WEEK 2
     Route: 065
     Dates: start: 20140519
  47. METHYLPREDNISOLONE. [Concomitant]
     Active Substance: METHYLPREDNISOLONE
     Dosage: OLE WEEK 2
     Route: 065
     Dates: start: 20140519, end: 20140519
  48. METHYLPREDNISOLONE. [Concomitant]
     Active Substance: METHYLPREDNISOLONE
     Dosage: OLE-WEEK 120
     Route: 065
     Dates: start: 20160822, end: 20160822
  49. METHYLPREDNISOLONE. [Concomitant]
     Active Substance: METHYLPREDNISOLONE
     Dosage: OLE-WEEK 168
     Route: 065
     Dates: start: 20170725, end: 20170725
  50. METHYLPREDNISOLONE. [Concomitant]
     Active Substance: METHYLPREDNISOLONE
     Dosage: OLE-WEEK 192
     Route: 065
     Dates: start: 20180111, end: 20180111
  51. LOTRIMIN (UNITED STATES) [Concomitant]
     Route: 065
     Dates: start: 20120924, end: 20121015
  52. DIPHENHYDRAMINE. [Concomitant]
     Active Substance: DIPHENHYDRAMINE
     Dosage: WEEK 72
     Route: 065
     Dates: start: 20131107
  53. DIPHENHYDRAMINE. [Concomitant]
     Active Substance: DIPHENHYDRAMINE
     Dosage: OLE-WEEK 168
     Route: 065
     Dates: start: 20170725
  54. OCRELIZUMAB. [Suspect]
     Active Substance: OCRELIZUMAB
     Dosage: WEEK 24
     Route: 042
     Dates: start: 20121204, end: 20121204
  55. METHYLPREDNISOLONE. [Concomitant]
     Active Substance: METHYLPREDNISOLONE
     Dosage: WEEK 24
     Route: 065
     Dates: start: 20121204, end: 20121204
  56. CIPRO [Concomitant]
     Active Substance: CIPROFLOXACIN HYDROCHLORIDE
     Route: 065
     Dates: start: 20121018, end: 20121101
  57. SULPHAMETHOXAZOLE [Concomitant]
     Active Substance: SULFAMETHOXAZOLE
     Route: 065
     Dates: start: 20121023, end: 20121203
  58. DIPHENHYDRAMINE. [Concomitant]
     Active Substance: DIPHENHYDRAMINE
     Dosage: OLE-WEEK 192
     Route: 065
     Dates: start: 20180111

REACTIONS (1)
  - Cellulitis [Recovered/Resolved]

NARRATIVE: CASE EVENT DATE: 20140311
